FAERS Safety Report 14923127 (Version 2)
Quarter: 2018Q3

REPORT INFORMATION
  Report Type: Report from Study
  Country: US (occurrence: US)
  Receive Date: 20180522
  Receipt Date: 20180802
  Transmission Date: 20181010
  Serious: Yes (Hospitalization, Other)
  Sender: FDA-Public Use
  Company Number: PHEH2018US019124

PATIENT
  Age: 39 Year
  Sex: Female

DRUGS (1)
  1. GILENYA [Suspect]
     Active Substance: FINGOLIMOD HYDROCHLORIDE
     Indication: MULTIPLE SCLEROSIS
     Dosage: 0.5 MG, QD
     Route: 048
     Dates: start: 20180221

REACTIONS (5)
  - Paraesthesia [Recovering/Resolving]
  - Epistaxis [Not Recovered/Not Resolved]
  - Sepsis [Recovering/Resolving]
  - Chest pain [Recovering/Resolving]
  - Band sensation [Recovering/Resolving]

NARRATIVE: CASE EVENT DATE: 20180315
